FAERS Safety Report 12799254 (Version 1)
Quarter: 2016Q3

REPORT INFORMATION
  Report Type: Spontaneous
  Country: US (occurrence: US)
  Receive Date: 20160930
  Receipt Date: 20160930
  Transmission Date: 20161109
  Serious: No
  Sender: FDA-Public Use
  Company Number: US-BAYER-2016-182257

PATIENT
  Age: 82 Year
  Sex: Female

DRUGS (2)
  1. AMBRISENTAN [Suspect]
     Active Substance: AMBRISENTAN
     Indication: PULMONARY HYPERTENSION
     Dosage: 5 MG, QD
     Route: 048
     Dates: start: 20150901
  2. ADEMPAS [Suspect]
     Active Substance: RIOCIGUAT
     Indication: PULMONARY HYPERTENSION
     Dosage: DAILY DOSE 7.5 MG
     Route: 048
     Dates: start: 20151222

REACTIONS (8)
  - Diarrhoea [None]
  - Decreased appetite [None]
  - Arthralgia [None]
  - Oedema peripheral [None]
  - Bone pain [None]
  - Rhinorrhoea [None]
  - Feeling abnormal [None]
  - Localised oedema [None]

NARRATIVE: CASE EVENT DATE: 20160901
